FAERS Safety Report 4441484-2 (Version None)
Quarter: 2004Q3

REPORT INFORMATION
  Report Type: 
  Country: None (occurrence: None)
  Receive Date: 20040728
  Receipt Date: 20040512
  Transmission Date: 20050211
  Serious: No
  Sender: FDA-Public Use
  Company Number: USA040567423

PATIENT
  Age: 17 Year
  Sex: Male
  Weight: 95 kg

DRUGS (3)
  1. STRATTERA [Suspect]
     Dosage: 120 MG
  2. MULTIVITAMIN AND MINERAL SUPPLEMENT [Concomitant]
  3. NATURAL DIGESTIVE ENZYMES [Concomitant]

REACTIONS (4)
  - ABDOMINAL PAIN UPPER [None]
  - CONSTIPATION [None]
  - FLATULENCE [None]
  - PRESCRIBED OVERDOSE [None]
